FAERS Safety Report 7156294-5 (Version None)
Quarter: 2010Q4

REPORT INFORMATION
  Report Type: 
  Country: None (occurrence: None)
  Receive Date: 20101123
  Receipt Date: 20100811
  Transmission Date: 20110411
  Serious: Yes (Hospitalization)
  Sender: FDA-Public Use
  Company Number: 015428

PATIENT
  Sex: Female

DRUGS (6)
  1. CIMZIA [Suspect]
     Indication: CROHN'S DISEASE
     Dosage: 400 MG, 1X/2 WEEKS SUBCUTANEOUS
     Route: 058
     Dates: start: 20090626
  2. MESALAMINE [Concomitant]
  3. CYMBALTA [Concomitant]
  4. ATENOLOL [Concomitant]
  5. PREVACID [Concomitant]
  6. CRYSELLE [Concomitant]

REACTIONS (2)
  - ABDOMINAL PAIN [None]
  - MUSCLE SPASMS [None]
